FAERS Safety Report 4282202-0 (Version None)
Quarter: 2004Q1

REPORT INFORMATION
  Report Type: 
  Country: None (occurrence: None)
  Receive Date: 20040130
  Receipt Date: 20040128
  Transmission Date: 20041129
  Serious: Yes (Other)
  Sender: FDA-Public Use
  Company Number: US-GLAXOSMITHKLINE-A0495331A

PATIENT
  Age: 35 Year
  Sex: Female

DRUGS (4)
  1. WELLBUTRIN [Suspect]
     Indication: EX-SMOKER
     Dosage: 150MG TWICE PER DAY
     Route: 048
     Dates: start: 20031110
  2. PAXIL [Concomitant]
  3. ATIVAN [Concomitant]
  4. ZYRTEC [Concomitant]

REACTIONS (4)
  - FATIGUE [None]
  - MUSCLE CONTRACTIONS INVOLUNTARY [None]
  - PARTIAL SEIZURES [None]
  - TREMOR [None]
